FAERS Safety Report 12893370 (Version 1)
Quarter: 2016Q4

REPORT INFORMATION
  Report Type: Spontaneous
  Country: US (occurrence: US)
  Receive Date: 20161027
  Receipt Date: 20161027
  Transmission Date: 20170207
  Serious: Yes (Hospitalization)
  Sender: FDA-Public Use
  Company Number: None

PATIENT
  Age: 79 Year
  Sex: Male

DRUGS (10)
  1. VYTORIN [Concomitant]
     Active Substance: EZETIMIBE\SIMVASTATIN
  2. FERROUS SULF [Concomitant]
  3. SUCRALFATE. [Concomitant]
     Active Substance: SUCRALFATE
  4. BYSTOLIC [Concomitant]
     Active Substance: NEBIVOLOL HYDROCHLORIDE
  5. NITORGLYCERIN [Concomitant]
  6. WARFARIN [Concomitant]
     Active Substance: WARFARIN
  7. PROCRIT [Suspect]
     Active Substance: ERYTHROPOIETIN
     Indication: HAEMORRHAGE
     Route: 058
     Dates: start: 201604
  8. BUMETANIDE. [Concomitant]
     Active Substance: BUMETANIDE
  9. FINASTERIDE. [Concomitant]
     Active Substance: FINASTERIDE
  10. ALOPURINOL [Concomitant]
     Active Substance: ALLOPURINOL

REACTIONS (3)
  - Renal disorder [None]
  - Angina pectoris [None]
  - Cardiac failure congestive [None]

NARRATIVE: CASE EVENT DATE: 20161020
